FAERS Safety Report 4591306-4 (Version None)
Quarter: 2005Q1

REPORT INFORMATION
  Report Type: 
  Country: None (occurrence: None)
  Receive Date: 20050225
  Receipt Date: 20050119
  Transmission Date: 20050727
  Serious: Yes (Hospitalization)
  Sender: FDA-Public Use
  Company Number: FR-ROCHE-392890

PATIENT
  Age: 62 Year
  Sex: Female
  Weight: 67 kg

DRUGS (7)
  1. CAPECITABINE [Suspect]
     Dosage: TWICE DAILY, FOR THE FIRST TWO WEEKS OF EACH THREE WEEK CYCLE. STARTING ON DAY 1 IN THE EVENING AND+
     Route: 048
     Dates: start: 20041102, end: 20050117
  2. TRASTUZUMAB [Suspect]
     Dosage: LOADING DOSE. ACTUAL DOSE GIVEN = 536 MG.
     Route: 042
     Dates: start: 20041102, end: 20041102
  3. TRASTUZUMAB [Suspect]
     Dosage: MAINTENANCE DOSE.
     Route: 042
     Dates: start: 20041123
  4. DOCETAXEL [Suspect]
     Dosage: ACTUAL DOSE GIVEN = 131  MG.
     Route: 042
     Dates: start: 20041102
  5. DEPAKENE [Concomitant]
     Dates: start: 20030615
  6. DOLIPRANE [Concomitant]
     Dates: start: 19940615
  7. NEULASTA [Concomitant]
     Dates: start: 20050105, end: 20050105

REACTIONS (3)
  - ABSCESS [None]
  - HAEMORRHOIDS [None]
  - PYREXIA [None]
